FAERS Safety Report 12195217 (Version 1)
Quarter: 2016Q1

REPORT INFORMATION
  Report Type: Spontaneous
  Country: US (occurrence: US)
  Receive Date: 20160321
  Receipt Date: 20160321
  Transmission Date: 20160526
  Serious: No
  Sender: FDA-Public Use
  Company Number: US-TEVA-551930USA

PATIENT
  Age: 26 Year
  Sex: Female

DRUGS (2)
  1. NORTRIPTYLINE [Suspect]
     Active Substance: NORTRIPTYLINE
     Indication: DEPRESSION
     Dosage: 10 MILLIGRAM DAILY;
     Route: 048
     Dates: start: 20150209, end: 20150316
  2. NORTRIPTYLINE [Suspect]
     Active Substance: NORTRIPTYLINE
     Indication: MIGRAINE

REACTIONS (8)
  - Agitation [Recovering/Resolving]
  - Photosensitivity reaction [Recovering/Resolving]
  - Fatigue [Recovering/Resolving]
  - Hyperhidrosis [Recovering/Resolving]
  - Alopecia [Not Recovered/Not Resolved]
  - Aggression [Recovered/Resolved]
  - Weight decreased [Recovering/Resolving]
  - Anger [Recovered/Resolved]

NARRATIVE: CASE EVENT DATE: 2015
